FAERS Safety Report 7267477-8 (Version None)
Quarter: 2011Q1

REPORT INFORMATION
  Report Type: 
  Country: None (occurrence: None)
  Receive Date: 20110201
  Receipt Date: 20110121
  Transmission Date: 20110831
  Serious: Yes (Other)
  Sender: FDA-Public Use
  Company Number: FR-JNJFOC-20110107728

PATIENT
  Age: 26 Year
  Sex: Male

DRUGS (3)
  1. TOPALGIC LP [Suspect]
     Indication: TOOTHACHE
     Route: 048
  2. ACETAMINOPHEN AND TRAMADOL HCL [Suspect]
     Route: 048
  3. ACETAMINOPHEN AND TRAMADOL HCL [Suspect]
     Indication: TOOTHACHE
     Route: 048

REACTIONS (8)
  - LABELLED DRUG-DRUG INTERACTION MEDICATION ERROR [None]
  - OVERDOSE [None]
  - NAUSEA [None]
  - VOMITING [None]
  - DIZZINESS [None]
  - MEDICATION ERROR [None]
  - HEADACHE [None]
  - INCORRECT DOSE ADMINISTERED [None]
